FAERS Safety Report 16009578 (Version 1)
Quarter: 2019Q1

REPORT INFORMATION
  Report Type: Spontaneous
  Country: US (occurrence: US)
  Receive Date: 20190226
  Receipt Date: 20190226
  Transmission Date: 20190418
  Serious: No
  Sender: FDA-Public Use
  Company Number: US-ASTRAZENECA-2019SE18806

PATIENT
  Sex: Female

DRUGS (2)
  1. STEROID [Concomitant]
     Active Substance: UNSPECIFIED INGREDIENT
     Dosage: DAILY
     Route: 065
  2. FASENRA [Suspect]
     Active Substance: BENRALIZUMAB
     Indication: ASTHMA
     Dosage: UNKNOWN
     Route: 058

REACTIONS (1)
  - Feeling abnormal [Unknown]
